FAERS Safety Report 8320130-1 (Version None)
Quarter: 2012Q2

REPORT INFORMATION
  Report Type: 
  Country: None (occurrence: None)
  Receive Date: 20120430
  Receipt Date: 20120419
  Transmission Date: 20120825
  Serious: Yes (Hospitalization)
  Sender: FDA-Public Use
  Company Number: IT-BRISTOL-MYERS SQUIBB COMPANY-16538480

PATIENT
  Age: 90 Year
  Sex: Male

DRUGS (7)
  1. ALLOPURINOL [Concomitant]
     Route: 048
  2. LASIX [Concomitant]
     Route: 048
  3. BISOPROLOL FUMARATE [Concomitant]
  4. RASILEZ [Concomitant]
     Indication: ATRIAL FIBRILLATION
  5. ALIFLUS DISKUS [Concomitant]
     Dosage: ALIFLUS POWDER FOR INALATION 1 DOSAGE UNIT
     Route: 055
  6. COUMADIN [Suspect]
     Indication: HEART VALVE REPLACEMENT
     Dates: start: 20040101
  7. LIBRADIN [Concomitant]

REACTIONS (2)
  - MELAENA [None]
  - GASTRITIS [None]
